FAERS Safety Report 17954232 (Version 1)
Quarter: 2020Q2

REPORT INFORMATION
  Report Type: Spontaneous
  Country: NL (occurrence: NL)
  Receive Date: 20200629
  Receipt Date: 20200629
  Transmission Date: 20200714
  Serious: Yes (Hospitalization, Other)
  Sender: FDA-Public Use
  Company Number: NL-AUROBINDO-AUR-APL-2020-030752

PATIENT
  Age: 57 Year
  Sex: Male

DRUGS (6)
  1. OXYGEN. [Suspect]
     Active Substance: OXYGEN
     Indication: PRODUCT USED FOR UNKNOWN INDICATION
     Dosage: 3 LITRE
     Route: 045
  2. CLOPIDOGREL [Suspect]
     Active Substance: CLOPIDOGREL BISULFATE
     Indication: PROPHYLAXIS
     Dosage: UNK
     Route: 065
  3. NADROPARIN [Suspect]
     Active Substance: NADROPARIN
     Dosage: 5700 INTERNATIONAL UNIT, DAILY
     Route: 058
  4. CHLOROQUINE. [Suspect]
     Active Substance: CHLOROQUINE
     Indication: PRODUCT USED FOR UNKNOWN INDICATION
     Dosage: UNK
     Route: 065
  5. AMOXICILLIN. [Suspect]
     Active Substance: AMOXICILLIN
     Indication: PRODUCT USED FOR UNKNOWN INDICATION
     Dosage: UNK
     Route: 065
  6. NADROPARIN [Suspect]
     Active Substance: NADROPARIN
     Indication: PROPHYLAXIS
     Dosage: 3800 INTERNATIONAL UNIT, DAILY
     Route: 058

REACTIONS (3)
  - Dysarthria [Recovering/Resolving]
  - COVID-19 [Unknown]
  - Hemiparesis [Recovering/Resolving]
